FAERS Safety Report 5174150-9 (Version None)
Quarter: 2006Q4

REPORT INFORMATION
  Report Type: 
  Country: None (occurrence: None)
  Receive Date: 20061214
  Receipt Date: 20051214
  Transmission Date: 20070319
  Serious: No
  Sender: FDA-Public Use
  Company Number: US-AMGEN-US161349

PATIENT
  Sex: Female
  Weight: 58.6 kg

DRUGS (2)
  1. ENBREL [Suspect]
     Indication: JUVENILE ARTHRITIS
     Route: 058
     Dates: start: 20051202
  2. METHOTREXATE [Concomitant]
     Route: 065
     Dates: start: 20050715

REACTIONS (1)
  - INJECTION SITE PAIN [None]
